FAERS Safety Report 7952445-0 (Version None)
Quarter: 2011Q4

REPORT INFORMATION
  Report Type: 
  Country: None (occurrence: None)
  Receive Date: 20111201
  Receipt Date: 20111123
  Transmission Date: 20120403
  Serious: Yes (Other)
  Sender: FDA-Public Use
  Company Number: GB-GLAXOSMITHKLINE-B0766147A

PATIENT
  Age: 9 Year
  Sex: Male

DRUGS (1)
  1. MALARONE [Suspect]
     Indication: MALARIA PROPHYLAXIS
     Dosage: 125MG PER DAY
     Route: 048
     Dates: start: 20111012, end: 20111110

REACTIONS (6)
  - DIZZINESS [None]
  - SYNCOPE [None]
  - MALAISE [None]
  - ABASIA [None]
  - COLD SWEAT [None]
  - PALLOR [None]
